FAERS Safety Report 16310839 (Version 3)
Quarter: 2020Q4

REPORT INFORMATION
  Report Type: Spontaneous
  Country: US (occurrence: US)
  Receive Date: 20190514
  Receipt Date: 20201223
  Transmission Date: 20210113
  Serious: Yes (Hospitalization, Other)
  Sender: FDA-Public Use
  Company Number: US-ASTRAZENECA-2019SE66976

PATIENT
  Age: 64 Year
  Sex: Male

DRUGS (39)
  1. PRILOSEC [Suspect]
     Active Substance: OMEPRAZOLE MAGNESIUM
     Indication: GASTROOESOPHAGEAL REFLUX DISEASE
     Route: 048
     Dates: start: 201112, end: 201204
  2. MAALOX ANTACID [Concomitant]
     Active Substance: ALUMINUM HYDROXIDE\DIMETHICONE\MAGNESIUM HYDROXIDE
  3. HALDOL [Concomitant]
     Active Substance: HALOPERIDOL
  4. ZANTAC [Concomitant]
     Active Substance: RANITIDINE HYDROCHLORIDE
  5. FLOMAX [Concomitant]
     Active Substance: TAMSULOSIN HYDROCHLORIDE
  6. VALIUM [Concomitant]
     Active Substance: DIAZEPAM
  7. FOLVITE [Concomitant]
     Active Substance: FOLIC ACID
  8. CIPRO [Concomitant]
     Active Substance: CIPROFLOXACIN HYDROCHLORIDE
  9. PROPOFOL. [Concomitant]
     Active Substance: PROPOFOL
  10. ZOFRAN [Concomitant]
     Active Substance: ONDANSETRON HYDROCHLORIDE
  11. PEPCID [Concomitant]
     Active Substance: FAMOTIDINE
  12. DIFLUCAN [Concomitant]
     Active Substance: FLUCONAZOLE
  13. ALLOPURINOL. [Concomitant]
     Active Substance: ALLOPURINOL
     Indication: GOUT
     Dates: start: 2000, end: 2010
  14. DELTASONE [Concomitant]
     Active Substance: PREDNISONE
  15. FERROUS GLUCONATE [Concomitant]
     Active Substance: FERROUS GLUCONATE
  16. OXYCODONE [Concomitant]
     Active Substance: OXYCODONE
  17. PRILOSEC [Suspect]
     Active Substance: OMEPRAZOLE MAGNESIUM
     Indication: GASTROOESOPHAGEAL REFLUX DISEASE
     Route: 048
     Dates: start: 201204, end: 201204
  18. LISINOPRIL. [Concomitant]
     Active Substance: LISINOPRIL
     Indication: HYPERTENSION
     Dates: start: 1995, end: 1997
  19. TERAZOSIN [Concomitant]
     Active Substance: TERAZOSIN HYDROCHLORIDE
     Dates: start: 2015
  20. IBUPROFEN. [Concomitant]
     Active Substance: IBUPROFEN
     Indication: MYALGIA
     Dosage: AS NEEDED
     Dates: start: 1970
  21. CAMPRAL [Concomitant]
     Active Substance: ACAMPROSATE CALCIUM
  22. MIDAZOLAM. [Concomitant]
     Active Substance: MIDAZOLAM
  23. FENTANYL. [Concomitant]
     Active Substance: FENTANYL
  24. CEFAZOLIN [Concomitant]
     Active Substance: CEFAZOLIN
  25. MORPHINE [Concomitant]
     Active Substance: MORPHINE
  26. TYLENOL [Concomitant]
     Active Substance: ACETAMINOPHEN
  27. VANCOCIN [Concomitant]
     Active Substance: VANCOMYCIN HYDROCHLORIDE
  28. BENADRYL [Concomitant]
     Active Substance: DIPHENHYDRAMINE HYDROCHLORIDE
     Indication: NASOPHARYNGITIS
     Dosage: AS NEEDED
     Dates: start: 1970
  29. THIAMINE. [Concomitant]
     Active Substance: THIAMINE
  30. TEMOVATE [Concomitant]
     Active Substance: CLOBETASOL PROPIONATE
  31. CIALIS [Concomitant]
     Active Substance: TADALAFIL
  32. LIDOCAINE. [Concomitant]
     Active Substance: LIDOCAINE
  33. MUTAMYCIN [Concomitant]
     Active Substance: MITOMYCIN
  34. ZOSYN [Concomitant]
     Active Substance: PIPERACILLIN SODIUM\TAZOBACTAM SODIUM
  35. HEPARIN [Concomitant]
     Active Substance: HEPARIN SODIUM
  36. CLOTRIMAZOLE. [Concomitant]
     Active Substance: CLOTRIMAZOLE
  37. HYTRIN [Concomitant]
     Active Substance: TERAZOSIN HYDROCHLORIDE
  38. PERCOCET [Concomitant]
     Active Substance: ACETAMINOPHEN\OXYCODONE HYDROCHLORIDE
  39. REGLAN [Concomitant]
     Active Substance: METOCLOPRAMIDE HYDROCHLORIDE

REACTIONS (4)
  - Tubulointerstitial nephritis [Unknown]
  - Acute kidney injury [Unknown]
  - Chronic kidney disease [Unknown]
  - Renal failure [Not Recovered/Not Resolved]

NARRATIVE: CASE EVENT DATE: 2012
